FAERS Safety Report 5972602-2 (Version None)
Quarter: 2008Q4

REPORT INFORMATION
  Report Type: 
  Country: None (occurrence: None)
  Receive Date: 20081125
  Receipt Date: 20081110
  Transmission Date: 20090506
  Serious: Yes (Hospitalization)
  Sender: FDA-Public Use
  Company Number: ADE# 08-184

PATIENT
  Sex: Female
  Weight: 46.2669 kg

DRUGS (4)
  1. DIGOXIN [Suspect]
     Indication: HEART RATE INCREASED
     Dosage: ONE TABLET DAILY
  2. COUMADIN [Concomitant]
  3. AMIODARONE HCL [Concomitant]
  4. ANOTHER MEDICATION FOR CANCER [Concomitant]

REACTIONS (2)
  - ASTHENIA [None]
  - WEIGHT DECREASED [None]
